FAERS Safety Report 9598296 (Version 1)
Quarter: 2013Q4

REPORT INFORMATION
  Report Type: Spontaneous
  Country: US (occurrence: US)
  Receive Date: 20131004
  Receipt Date: 20131004
  Transmission Date: 20140711
  Serious: No
  Sender: FDA-Public Use
  Company Number: US-AMGEN-USASP2013023122

PATIENT
  Age: 50 Year
  Sex: Female
  Weight: 77.1 kg

DRUGS (5)
  1. ENBREL [Suspect]
     Indication: PRODUCT USED FOR UNKNOWN INDICATION
     Dosage: 50 MG, 2 TIMES/WK
     Route: 058
     Dates: start: 2008, end: 2009
  2. HYZAAR [Concomitant]
     Dosage: 50-12.5, UNK
  3. METFORMIN [Concomitant]
     Dosage: 850 MG, UNK
  4. ASA [Concomitant]
     Dosage: LOW DOSE TABLET, 81 MG, UNK
  5. VITAMIN D                          /00107901/ [Concomitant]
     Dosage: 1000 UNIT, UNK

REACTIONS (1)
  - Therapeutic response decreased [Unknown]
